FAERS Safety Report 19144147 (Version 2)
Quarter: 2021Q2

REPORT INFORMATION
  Report Type: Spontaneous
  Country: US (occurrence: US)
  Receive Date: 20210416
  Receipt Date: 20210421
  Transmission Date: 20210717
  Serious: Yes (Other)
  Sender: FDA-Public Use
  Company Number: US-SA-2021SA120994

PATIENT
  Age: 84 Year
  Sex: Male

DRUGS (2)
  1. PLAVIX [Suspect]
     Active Substance: CLOPIDOGREL BISULFATE
     Dosage: 1 DF, Q12H
     Route: 048
     Dates: start: 20210317
  2. ELIQUIS [Suspect]
     Active Substance: APIXABAN
     Dosage: 1 DF, BID
     Route: 048

REACTIONS (2)
  - Product dose omission issue [Unknown]
  - Internal haemorrhage [Unknown]

NARRATIVE: CASE EVENT DATE: 20210317
